FAERS Safety Report 12776797 (Version 1)
Quarter: 2016Q3

REPORT INFORMATION
  Report Type: Spontaneous
  Country: US (occurrence: US)
  Receive Date: 20160923
  Receipt Date: 20160923
  Transmission Date: 20161109
  Serious: No
  Sender: FDA-Public Use
  Company Number: US-KEDRION-2016-105

PATIENT

DRUGS (1)
  1. RHOGAM [Suspect]
     Active Substance: HUMAN RHO(D) IMMUNE GLOBULIN
     Route: 064

REACTIONS (4)
  - Foetal exposure during pregnancy [None]
  - Blood bilirubin [Unknown]
  - Rhesus antibodies positive [None]
  - Anaemia [None]

NARRATIVE: CASE EVENT DATE: 2015
